FAERS Safety Report 10562518 (Version 1)
Quarter: 2014Q4

REPORT INFORMATION
  Report Type: Spontaneous
  Country: US (occurrence: None)
  Receive Date: 20141103
  Receipt Date: 20141103
  Transmission Date: 20150529
  Serious: No
  Sender: FDA-Public Use
  Company Number: None

PATIENT
  Age: 55 Year
  Sex: Male
  Weight: 88.3 kg

DRUGS (2)
  1. NEUPOGEN [Suspect]
     Active Substance: FILGRASTIM
     Indication: HAEMATOPOIETIC STEM CELL MOBILISATION
     Dosage: NEUPOGEN ONCE DAIILY FOR 8 DAYS SUB-Q
     Route: 058
     Dates: start: 20141024, end: 20141031
  2. PLERIXAFOR [Concomitant]
     Active Substance: PLERIXAFOR

REACTIONS (6)
  - Cough [None]
  - Feeling hot [None]
  - Hypotension [None]
  - Transfusion reaction [None]
  - Device related infection [None]
  - Haematocrit decreased [None]

NARRATIVE: CASE EVENT DATE: 20141030
